FAERS Safety Report 25710283 (Version 1)
Quarter: 2025Q3

REPORT INFORMATION
  Report Type: Spontaneous
  Country: CN (occurrence: CN)
  Receive Date: 20250821
  Receipt Date: 20250821
  Transmission Date: 20251021
  Serious: Yes (Hospitalization)
  Sender: NOVARTIS
  Company Number: CN-002147023-NVSC2025CN130624

PATIENT
  Age: 4 Day
  Sex: Male
  Weight: 3.41 kg

DRUGS (1)
  1. TOBRAMYCIN [Suspect]
     Active Substance: TOBRAMYCIN
     Indication: Eye discharge
     Dosage: 0.1 ML, TID
     Route: 047
     Dates: start: 20250803, end: 20250804

REACTIONS (3)
  - Conjunctival haemorrhage [Recovering/Resolving]
  - Erythema [Unknown]
  - Off label use [Unknown]

NARRATIVE: CASE EVENT DATE: 20250804
